FAERS Safety Report 4380658-6 (Version None)
Quarter: 2004Q2

REPORT INFORMATION
  Report Type: 
  Country: None (occurrence: None)
  Receive Date: 20040618
  Receipt Date: 20040609
  Transmission Date: 20050107
  Serious: Yes (Other)
  Sender: FDA-Public Use
  Company Number: AU-ROCHE-370585

PATIENT
  Sex: Female
  Weight: 81 kg

DRUGS (7)
  1. CEFTRIAXONE SODIUM [Suspect]
     Route: 042
     Dates: start: 20030309, end: 20030310
  2. AMPICILLIN [Suspect]
     Route: 042
     Dates: start: 20030309, end: 20030310
  3. METRONIDAZOLE [Suspect]
     Route: 042
     Dates: start: 20040309, end: 20040310
  4. CYCLOSPORINE [Concomitant]
  5. AMLODIPINE [Concomitant]
  6. PANTOPRAZOLE [Concomitant]
  7. ACIDE URSODEOXYCHOLIQUE [Concomitant]

REACTIONS (2)
  - SWOLLEN TONGUE [None]
  - URTICARIA [None]
